FAERS Safety Report 19313955 (Version 1)
Quarter: 2021Q2

REPORT INFORMATION
  Report Type: Spontaneous
  Country: US (occurrence: US)
  Receive Date: 20210527
  Receipt Date: 20210527
  Transmission Date: 20210717
  Serious: Yes (Death)
  Sender: FDA-Public Use
  Company Number: US-ASTRAZENECA-2021A465834

PATIENT
  Age: 20415 Day
  Sex: Male
  Weight: 140.6 kg

DRUGS (2)
  1. BREZTRI AEROSPHERE [Suspect]
     Active Substance: BUDESONIDE\FORMOTEROL\GLYCOPYRRONIUM
     Indication: EMPHYSEMA
     Dosage: 160/9/4.8 MCG 2 PUFFS TWICE DAILY
     Route: 055
     Dates: start: 202101
  2. BREZTRI AEROSPHERE [Suspect]
     Active Substance: BUDESONIDE\FORMOTEROL\GLYCOPYRRONIUM
     Indication: PULMONARY FIBROSIS
     Dosage: 160/9/4.8 MCG 2 PUFFS TWICE DAILY
     Route: 055
     Dates: start: 202101

REACTIONS (1)
  - Death [Fatal]

NARRATIVE: CASE EVENT DATE: 20210507
